FAERS Safety Report 19099052 (Version 3)
Quarter: 2021Q2

REPORT INFORMATION
  Report Type: Report from Study
  Country: US (occurrence: US)
  Receive Date: 20210406
  Receipt Date: 20210424
  Transmission Date: 20210717
  Serious: Yes (Death, Hospitalization, Other)
  Sender: FDA-Public Use
  Company Number: US-B.I. PHARMACEUTICALS,INC./RIDGEFIELD-2020-BI-050407

PATIENT
  Age: 79 Year
  Sex: Female

DRUGS (2)
  1. OFEV [Suspect]
     Active Substance: NINTEDANIB
     Route: 048
     Dates: start: 20200908
  2. OFEV [Suspect]
     Active Substance: NINTEDANIB
     Indication: IDIOPATHIC PULMONARY FIBROSIS
     Dosage: OFEV DOSE 300MG DAILY
     Route: 048
     Dates: start: 20170702, end: 20210205

REACTIONS (6)
  - Nausea [Unknown]
  - Weight decreased [Recovered/Resolved]
  - Haematochezia [Unknown]
  - Death [Fatal]
  - Renal disorder [Unknown]
  - Malaise [Recovered/Resolved]

NARRATIVE: CASE EVENT DATE: 20170702
